FAERS Safety Report 7418561-7 (Version None)
Quarter: 2011Q2

REPORT INFORMATION
  Report Type: 
  Country: None (occurrence: None)
  Receive Date: 20110415
  Receipt Date: 20110401
  Transmission Date: 20111010
  Serious: Yes (Hospitalization)
  Sender: FDA-Public Use
  Company Number: PHBS2007JP07257

PATIENT
  Age: 43 Year
  Sex: Male

DRUGS (9)
  1. SIMULECT [Suspect]
     Indication: RENAL AND PANCREAS TRANSPLANT
     Dosage: 20 MG, ONCE/SINGLE
     Route: 042
     Dates: start: 20060125, end: 20060125
  2. ADRENAL HORMONE PREPARATIONS [Suspect]
     Indication: RENAL AND PANCREAS TRANSPLANT
     Route: 042
     Dates: start: 20060126
  3. ADRENAL HORMONE PREPARATIONS [Suspect]
     Dosage: 30 TO 50 MG DAILY
  4. PREDNISOLONE [Suspect]
     Indication: RENAL TRANSPLANT
     Dosage: 10 TO 30 MG DAILY
     Route: 048
  5. CELLCEPT [Suspect]
     Dosage: 1000 MG
     Dates: start: 20060129
  6. PROGRAF [Suspect]
     Route: 048
  7. SIMULECT [Suspect]
     Dosage: 20 MG, ONCE/SINGLE
     Route: 042
     Dates: start: 20060129, end: 20060129
  8. PROGRAF [Suspect]
     Indication: RENAL AND PANCREAS TRANSPLANT
     Dosage: 7.5 MG
     Route: 042
     Dates: start: 20060125, end: 20060125
  9. CELLCEPT [Suspect]
     Indication: RENAL AND PANCREAS TRANSPLANT
     Dosage: 1000 MG
     Route: 048
     Dates: start: 20060125, end: 20060125

REACTIONS (11)
  - CYTOMEGALOVIRUS INFECTION [None]
  - SERRATIA INFECTION [None]
  - URETHRAL STENOSIS [None]
  - POSTOPERATIVE WOUND INFECTION [None]
  - SOFT TISSUE NECROSIS [None]
  - PYREXIA [None]
  - ABSCESS [None]
  - BACK PAIN [None]
  - WOUND DEHISCENCE [None]
  - URINE OUTPUT DECREASED [None]
  - PURULENT DISCHARGE [None]
